FAERS Safety Report 11179321 (Version 2)
Quarter: 2015Q2

REPORT INFORMATION
  Report Type: Report from Study
  Country: BR (occurrence: BR)
  Receive Date: 20150610
  Receipt Date: 20150617
  Transmission Date: 20150821
  Serious: Yes (Other)
  Sender: FDA-Public Use
  Company Number: BR-ROCHE-1591427

PATIENT
  Sex: Female
  Weight: 74 kg

DRUGS (3)
  1. METHOTREXATE [Concomitant]
     Active Substance: METHOTREXATE
     Route: 065
  2. MABTHERA [Suspect]
     Active Substance: RITUXIMAB
     Indication: RHEUMATOID ARTHRITIS
     Route: 042
     Dates: start: 20141124, end: 20141209
  3. DEFLAZACORT [Concomitant]
     Active Substance: DEFLAZACORT
     Route: 065

REACTIONS (4)
  - Abasia [Unknown]
  - Drug ineffective [Unknown]
  - Joint effusion [Not Recovered/Not Resolved]
  - Rheumatoid arthritis [Not Recovered/Not Resolved]
